FAERS Safety Report 13671168 (Version 1)
Quarter: 2017Q2

REPORT INFORMATION
  Report Type: Spontaneous
  Country: US (occurrence: US)
  Receive Date: 20170620
  Receipt Date: 20170620
  Transmission Date: 20170830
  Serious: No
  Sender: FDA-Public Use
  Company Number: US-ROCHE-1135093

PATIENT
  Age: 49 Year
  Sex: Female
  Weight: 74.46 kg

DRUGS (3)
  1. XELODA [Suspect]
     Active Substance: CAPECITABINE
     Route: 048
     Dates: start: 20120824, end: 20120903
  2. XELODA [Suspect]
     Active Substance: CAPECITABINE
     Route: 048
     Dates: start: 20120824, end: 20120903
  3. XELODA [Suspect]
     Active Substance: CAPECITABINE
     Indication: BREAST CANCER METASTATIC
     Dosage: 1000 MG AT MORNING AND 1500 MG AT BED TIME
     Route: 048
     Dates: start: 20120615, end: 20120817

REACTIONS (4)
  - Visual impairment [Recovered/Resolved]
  - Erythema [Recovered/Resolved]
  - Skin exfoliation [Recovering/Resolving]
  - Photophobia [Recovered/Resolved]

NARRATIVE: CASE EVENT DATE: 20120615
